FAERS Safety Report 10191572 (Version 1)
Quarter: 2014Q2

REPORT INFORMATION
  Report Type: Spontaneous
  Country: CA (occurrence: None)
  Receive Date: 20140521
  Receipt Date: 20140521
  Transmission Date: 20141212
  Serious: Yes (Other)
  Sender: FDA-Public Use
  Company Number: 2014-CA-006276

PATIENT
  Age: 27 Year
  Sex: Female

DRUGS (4)
  1. XYREM (SODIUM OXYABTE) ORAL SOLUTION, 500MG/ML [Suspect]
     Indication: CATAPLEXY
     Route: 048
     Dates: start: 20131125, end: 20140301
  2. FOLIC ACID (FOLIC ACID) [Concomitant]
  3. VITAMIN D (ERGOCALCIFEROL) [Concomitant]
  4. VITAMIN C (ASCORBIC ACID) [Concomitant]

REACTIONS (2)
  - Abortion spontaneous [None]
  - Maternal drugs affecting foetus [None]
